FAERS Safety Report 14539459 (Version 8)
Quarter: 2018Q3

REPORT INFORMATION
  Report Type: Report from Study
  Country: FR (occurrence: FR)
  Receive Date: 20180216
  Receipt Date: 20180920
  Transmission Date: 20181010
  Serious: Yes (Hospitalization)
  Sender: FDA-Public Use
  Company Number: PHHO2017FR010158

PATIENT
  Age: 27 Year
  Sex: Female

DRUGS (13)
  1. PAZOPANIB [Suspect]
     Active Substance: PAZOPANIB
     Dosage: 600 MG, QD
     Route: 048
     Dates: start: 20161129
  2. CHLORMADINONE [Concomitant]
     Active Substance: CHLORMADINONE
     Indication: ORAL CONTRACEPTION
     Route: 065
  3. RAMIPRIL. [Concomitant]
     Active Substance: RAMIPRIL
     Indication: HYPERTENSION
     Dosage: UNK
     Route: 065
     Dates: start: 20161222
  4. AMLODIPINE [Concomitant]
     Active Substance: AMLODIPINE BESYLATE
     Indication: HYPERTENSION
     Dosage: UNK
     Route: 065
     Dates: start: 20161222
  5. ESOMEPRAZOLE [Concomitant]
     Active Substance: ESOMEPRAZOLE
     Indication: ABDOMINAL PAIN UPPER
     Dosage: AS NECESSARY
     Route: 065
  6. DOLIPRANE [Concomitant]
     Active Substance: ACETAMINOPHEN
     Indication: PAIN
     Dosage: AS NECESSARY
     Route: 065
  7. TIORFAN [Concomitant]
     Active Substance: RACECADOTRIL
     Indication: DIARRHOEA
     Dosage: AS NECESSARY
     Route: 065
  8. PAZOPANIB [Suspect]
     Active Substance: PAZOPANIB
     Indication: DESMOID TUMOUR
     Dosage: 800 MG, QD  CYCLE 1
     Route: 048
     Dates: start: 20161006
  9. PAZOPANIB [Suspect]
     Active Substance: PAZOPANIB
     Dosage: 400 MG, QD
     Route: 048
     Dates: start: 20170726
  10. SPASFON [Concomitant]
     Indication: ABDOMINAL PAIN
     Dosage: AS NECESSARY
     Route: 065
  11. ZOPHREN [Concomitant]
     Active Substance: ONDANSETRON
     Indication: NAUSEA
     Dosage: AS NECESSARY
     Route: 065
  12. PAZOPANIB [Suspect]
     Active Substance: PAZOPANIB
     Dosage: 400 MG, QD
     Route: 048
     Dates: start: 20170705, end: 20170718
  13. PAZOPANIB [Suspect]
     Active Substance: PAZOPANIB
     Dosage: 600 MG, QD CYCLE 2 TO 10
     Route: 048
     Dates: start: 20170531, end: 20170704

REACTIONS (1)
  - Paraesthesia [Recovered/Resolved]

NARRATIVE: CASE EVENT DATE: 20170703
